FAERS Safety Report 23032203 (Version 1)
Quarter: 2023Q4

REPORT INFORMATION
  Report Type: Spontaneous
  Country: US (occurrence: US)
  Receive Date: 20231005
  Receipt Date: 20231005
  Transmission Date: 20240110
  Serious: Yes (Hospitalization, Other)
  Sender: FDA-Public Use
  Company Number: US-CADILA HEALTHCARE LIMITED-US-ZYDUS-098399

PATIENT

DRUGS (2)
  1. BUPROPION [Suspect]
     Active Substance: BUPROPION
     Indication: Depression
     Dosage: 300 MILLIGRAM
     Route: 065
  2. OLANZAPINE [Suspect]
     Active Substance: OLANZAPINE
     Indication: Depression
     Dosage: 10 MILLIGRAM
     Route: 065

REACTIONS (9)
  - Electrocardiogram QRS complex prolonged [Recovered/Resolved]
  - Cardiogenic shock [Recovered/Resolved]
  - Ejection fraction decreased [Recovered/Resolved]
  - Electrocardiogram QT prolonged [Recovered/Resolved]
  - Cardiac arrest [Recovered/Resolved]
  - Generalised tonic-clonic seizure [Recovered/Resolved]
  - Tachycardia [Recovered/Resolved]
  - Gastrointestinal hypomotility [Unknown]
  - Overdose [None]
